FAERS Safety Report 24191366 (Version 2)
Quarter: 2024Q3

REPORT INFORMATION
  Report Type: Spontaneous
  Country: CN (occurrence: CN)
  Receive Date: 20240808
  Receipt Date: 20240822
  Transmission Date: 20241017
  Serious: Yes (Other)
  Sender: NOVARTIS
  Company Number: CN-002147023-NVSC2024CN161509

PATIENT
  Age: 38 Year
  Sex: Female

DRUGS (1)
  1. VOTRIENT [Suspect]
     Active Substance: PAZOPANIB HYDROCHLORIDE
     Indication: Renal cell carcinoma
     Dosage: 800 MG (THROUGH MOUTH)
     Route: 048
     Dates: start: 20220404

REACTIONS (3)
  - Ascites [Unknown]
  - Liver injury [Unknown]
  - Metastases to liver [Unknown]
